FAERS Safety Report 9617741 (Version 1)
Quarter: 2013Q4

REPORT INFORMATION
  Report Type: Spontaneous
  Country: NL (occurrence: NL)
  Receive Date: 20131011
  Receipt Date: 20131011
  Transmission Date: 20140711
  Serious: Yes (Other)
  Sender: FDA-Public Use
  Company Number: PHHY2013NL112064

PATIENT
  Age: 73 Year
  Sex: Female

DRUGS (3)
  1. CLOMIPRAMINE [Suspect]
     Dosage: 75 MG, DAILY, {30MONTHS
  2. PANTOPRAZOLE [Suspect]
  3. ETORICOXIB [Suspect]

REACTIONS (2)
  - Inappropriate antidiuretic hormone secretion [Unknown]
  - Hyponatraemia [Unknown]
